FAERS Safety Report 20195591 (Version 1)
Quarter: 2021Q4

REPORT INFORMATION
  Report Type: Other
  Country: None (occurrence: US)
  Receive Date: 20211216
  Receipt Date: 20211216
  Transmission Date: 20220303
  Serious: Yes (Other)
  Sender: FDA-Public Use
  Company Number: US-B.Braun Medical Inc.-2123109

PATIENT
  Age: 62 Year
  Sex: Male

DRUGS (1)
  1. CEFUROXIME SODIUM [Suspect]
     Active Substance: CEFUROXIME SODIUM

REACTIONS (4)
  - Macular oedema [Recovered/Resolved]
  - Macular detachment [Recovered/Resolved]
  - Retinal toxicity [Recovered/Resolved]
  - Off label use [Recovered/Resolved]
